FAERS Safety Report 10643174 (Version 1)
Quarter: 2014Q4

REPORT INFORMATION
  Report Type: Spontaneous
  Country: US (occurrence: None)
  Receive Date: 20141209
  Receipt Date: 20141209
  Transmission Date: 20150529
  Serious: No
  Sender: FDA-Public Use
  Company Number: None

PATIENT
  Sex: Male

DRUGS (4)
  1. SPRYCEL [Suspect]
     Active Substance: DASATINIB
     Indication: CHRONIC MYELOID LEUKAEMIA
     Dosage: ONE TABLET
     Route: 048
     Dates: start: 20131220
  2. SIMVASTATIN. [Concomitant]
     Active Substance: SIMVASTATIN
  3. NASONEX [Concomitant]
     Active Substance: MOMETASONE FUROATE
  4. PULMICORT TURBUHALER [Concomitant]
     Active Substance: BUDESONIDE

REACTIONS (2)
  - Eye pruritus [None]
  - Eyelid margin crusting [None]

NARRATIVE: CASE EVENT DATE: 2014
